FAERS Safety Report 10306570 (Version 3)
Quarter: 2014Q4

REPORT INFORMATION
  Report Type: Spontaneous
  Country: US (occurrence: US)
  Receive Date: 20140715
  Receipt Date: 20141010
  Transmission Date: 20150528
  Serious: Yes (Death, Hospitalization)
  Sender: FDA-Public Use
  Company Number: US-ALKERMES INC.-ALK-2014-003037

PATIENT

DRUGS (2)
  1. VIVITROL [Suspect]
     Active Substance: NALTREXONE
     Indication: ALCOHOLISM
     Dosage: 380 MG, QMO
     Route: 030
     Dates: start: 201403
  2. CAMPRAL EC [Concomitant]
     Indication: ALCOHOLISM
     Dosage: 666 MG, TID
     Route: 048
     Dates: start: 201303

REACTIONS (6)
  - Alcohol use [Not Recovered/Not Resolved]
  - Swelling face [Not Recovered/Not Resolved]
  - Cardiac failure [Fatal]
  - Head injury [Unknown]
  - Fall [Recovered/Resolved]
  - Drug ineffective [Not Recovered/Not Resolved]

NARRATIVE: CASE EVENT DATE: 20140703
